FAERS Safety Report 9881511 (Version 1)
Quarter: 2014Q1

REPORT INFORMATION
  Report Type: Spontaneous
  Country: US (occurrence: US)
  Receive Date: 20140207
  Receipt Date: 20140207
  Transmission Date: 20141002
  Serious: No
  Sender: FDA-Public Use
  Company Number: US-BAYER-2014-018315

PATIENT
  Age: 52 Year
  Sex: Female
  Weight: 70.3 kg

DRUGS (3)
  1. ALEVE GELCAPS [Suspect]
     Indication: ANALGESIC THERAPY
     Dosage: 2 DF, PRN
     Dates: start: 201312, end: 201401
  2. BAYER ASPIRIN REGIMEN ADULT LOW STRENGTH [Concomitant]
     Dosage: UNK, UNK
  3. CENTRUM [Concomitant]
     Dosage: UNK

REACTIONS (3)
  - Drug ineffective [None]
  - Drug ineffective [None]
  - Extra dose administered [None]
